FAERS Safety Report 4439835-8 (Version None)
Quarter: 2004Q3

REPORT INFORMATION
  Report Type: 
  Country: None (occurrence: None)
  Receive Date: 20040902
  Receipt Date: 20040823
  Transmission Date: 20050211
  Serious: Yes (Other)
  Sender: FDA-Public Use
  Company Number: CA-JNJFOC-20040808478

PATIENT
  Sex: Female
  Weight: 37.2 kg

DRUGS (10)
  1. LEVOFLOXACIN [Suspect]
     Indication: PNEUMONIA
     Route: 049
     Dates: start: 20040731, end: 20040809
  2. NOVOPREDNISONE [Suspect]
     Indication: PNEUMONIA
     Route: 049
  3. FLOVENT [Concomitant]
  4. VENTOLIN DISKUS [Concomitant]
  5. PREDNISONE [Concomitant]
     Dosage: 1/2 TABLET X 7 DAYS
     Route: 049
  6. COZAAR [Concomitant]
     Route: 049
  7. VIOXX [Concomitant]
     Route: 049
  8. PANTOLOC [Concomitant]
     Route: 049
  9. SPIRIVA [Concomitant]
  10. ATIVAN [Concomitant]
     Route: 049

REACTIONS (1)
  - MUSCLE RUPTURE [None]
